FAERS Safety Report 5139781-0 (Version None)
Quarter: 2006Q4

REPORT INFORMATION
  Report Type: 
  Country: None (occurrence: None)
  Receive Date: 20061024
  Receipt Date: 20061012
  Transmission Date: 20070319
  Serious: Yes (Other)
  Sender: FDA-Public Use
  Company Number: 14750

PATIENT
  Age: 54 Year
  Sex: Female
  Weight: 60 kg

DRUGS (6)
  1. CARBOPLATIN [Suspect]
     Indication: OVARIAN CANCER
     Dates: start: 20060804, end: 20060825
  2. ONDANSETRON [Concomitant]
  3. HYDROCORTISONE [Concomitant]
  4. DOCETAXEL [Concomitant]
  5. CLARITIN [Concomitant]
  6. RANITIDINE [Concomitant]

REACTIONS (5)
  - ADVERSE DRUG REACTION [None]
  - FLUSHING [None]
  - MALAISE [None]
  - NAUSEA [None]
  - VOMITING [None]
